FAERS Safety Report 16373535 (Version 1)
Quarter: 2019Q2

REPORT INFORMATION
  Report Type: Spontaneous
  Country: US (occurrence: US)
  Receive Date: 20190530
  Receipt Date: 20190530
  Transmission Date: 20190711
  Serious: No
  Sender: FDA-Public Use
  Company Number: US-SA-2019SA144397

PATIENT
  Sex: Male

DRUGS (10)
  1. ONDANSETRON [Concomitant]
     Active Substance: ONDANSETRON
  2. IPRATROPIUM [Concomitant]
     Active Substance: IPRATROPIUM
  3. DICYCLOMINE [DICYCLOVERINE] [Concomitant]
  4. FLUTICASONE. [Concomitant]
     Active Substance: FLUTICASONE
  5. TAMSULOSIN [Concomitant]
     Active Substance: TAMSULOSIN
  6. ZETIA [Concomitant]
     Active Substance: EZETIMIBE
  7. PRALUENT [Suspect]
     Active Substance: ALIROCUMAB
     Indication: SENILE OSTEOPOROSIS
     Dosage: 150 MG, QOW
  8. SYMBICORT [Concomitant]
     Active Substance: BUDESONIDE\FORMOTEROL FUMARATE DIHYDRATE
  9. VALSARTAN. [Concomitant]
     Active Substance: VALSARTAN
  10. ROSUVASTATIN. [Concomitant]
     Active Substance: ROSUVASTATIN

REACTIONS (1)
  - Product dose omission [Unknown]
